FAERS Safety Report 4867226-4 (Version None)
Quarter: 2005Q4

REPORT INFORMATION
  Report Type: 
  Country: None (occurrence: None)
  Receive Date: 20051222
  Receipt Date: 20051207
  Transmission Date: 20060501
  Serious: Yes (Other)
  Sender: FDA-Public Use
  Company Number: S05-USA-05178-01

PATIENT
  Age: 57 Year
  Sex: Female

DRUGS (4)
  1. LEXAPRO [Suspect]
     Indication: DEPRESSION
     Dosage: 10 MG QD PO
     Route: 048
     Dates: start: 20030601, end: 20051210
  2. MULTI-VITAMIN [Concomitant]
  3. FOLIC ACID [Concomitant]
  4. CALCIUM GLUCONATE [Concomitant]

REACTIONS (7)
  - DIARRHOEA [None]
  - DYSPEPSIA [None]
  - ERUCTATION [None]
  - PLATELET COUNT DECREASED [None]
  - RED BLOOD CELL MACROCYTES PRESENT [None]
  - RED BLOOD CELL MORPHOLOGY ABNORMAL [None]
  - WHITE BLOOD CELL COUNT DECREASED [None]
